FAERS Safety Report 8913498 (Version 1)
Quarter: 2012Q4

REPORT INFORMATION
  Report Type: Spontaneous
  Country: US (occurrence: None)
  Receive Date: 20121114
  Receipt Date: 20121114
  Transmission Date: 20130627
  Serious: Yes (Other)
  Sender: FDA-Public Use
  Company Number: QSC-2012-0281

PATIENT
  Age: 75 Year
  Sex: Male

DRUGS (2)
  1. ACTHAR [Suspect]
     Indication: NEPHROTIC SYNDROME
     Dates: start: 20120801, end: 201209
  2. ACTHAR [Suspect]
     Indication: NEPHROTIC SYNDROME
     Dates: start: 20120905, end: 20121021

REACTIONS (21)
  - Pneumothorax [None]
  - Rib fracture [None]
  - Fall [None]
  - Anxiety [None]
  - Syncope [None]
  - Cough [None]
  - Nausea [None]
  - Fluid retention [None]
  - Oedema peripheral [None]
  - Oedema peripheral [None]
  - Joint swelling [None]
  - Oedema peripheral [None]
  - Gait disturbance [None]
  - Joint stiffness [None]
  - Sleep disorder [None]
  - Fatigue [None]
  - Asthenia [None]
  - Dyspepsia [None]
  - Hypophagia [None]
  - Gastrointestinal motility disorder [None]
  - Faecal incontinence [None]
